FAERS Safety Report 6227661-9 (Version None)
Quarter: 2009Q2

REPORT INFORMATION
  Report Type: 
  Country: None (occurrence: None)
  Receive Date: 20090612
  Receipt Date: 20090604
  Transmission Date: 20091009
  Serious: Yes (Other)
  Sender: FDA-Public Use
  Company Number: PHEH2009US05698

PATIENT
  Sex: Male
  Weight: 61.224 kg

DRUGS (7)
  1. RECLAST [Suspect]
     Indication: OSTEOPOROSIS
     Dosage: 5 MG, ONCE/SINGLE
     Dates: start: 20081001, end: 20081001
  2. COUMADIN [Concomitant]
     Dosage: 5 MG, QD
  3. MYSOLINE [Concomitant]
     Dosage: 50 MG, BID
  4. PRILOSEC [Concomitant]
     Dosage: 20 MG, QD
  5. BYSTOLIC [Concomitant]
     Dosage: 10 MG, QD
  6. ALDACTONE [Concomitant]
     Dosage: 25 MG, QD
  7. FOSINOPRIL SODIUM [Concomitant]
     Dosage: 40 MG, QD

REACTIONS (8)
  - BONE DISORDER [None]
  - FACIAL PAIN [None]
  - LYMPH NODE PAIN [None]
  - LYMPHADENOPATHY [None]
  - ORAL SURGERY [None]
  - OSTEONECROSIS [None]
  - SWELLING FACE [None]
  - TOOTH EXTRACTION [None]
